FAERS Safety Report 23938054 (Version 1)
Quarter: 2024Q2

REPORT INFORMATION
  Report Type: Spontaneous
  Country: US (occurrence: US)
  Receive Date: 20240604
  Receipt Date: 20240604
  Transmission Date: 20240716
  Serious: No
  Sender: FDA-Public Use
  Company Number: US-Calliditas-2024CAL00872

PATIENT
  Age: 50 Year
  Sex: Female
  Weight: 86.2 kg

DRUGS (1)
  1. TARPEYO [Suspect]
     Active Substance: BUDESONIDE
     Indication: IgA nephropathy
     Route: 048
     Dates: start: 20240425

REACTIONS (4)
  - Depression [Unknown]
  - Insomnia [Unknown]
  - Hypertension [Unknown]
  - Rash [Unknown]
